FAERS Safety Report 23571099 (Version 1)
Quarter: 2024Q1

REPORT INFORMATION
  Report Type: Spontaneous
  Country: GB (occurrence: GB)
  Receive Date: 20240227
  Receipt Date: 20240227
  Transmission Date: 20240410
  Serious: Yes (Other)
  Sender: FDA-Public Use
  Company Number: GB-SUN PHARMACEUTICAL INDUSTRIES LTD-2024RR-433573

PATIENT
  Age: 78 Year
  Sex: Female
  Weight: 70 kg

DRUGS (4)
  1. ATORVASTATIN [Suspect]
     Active Substance: ATORVASTATIN
     Indication: Familial risk factor
     Dosage: UNK
     Route: 065
     Dates: end: 202312
  2. ATORVASTATIN [Suspect]
     Active Substance: ATORVASTATIN
     Indication: Familial risk factor
     Dosage: UNK
     Route: 065
     Dates: start: 2022, end: 202312
  3. CALCIUM [Concomitant]
     Active Substance: CALCIUM
     Indication: Adverse drug reaction
     Dosage: UNK
     Route: 065
  4. CALCIUM [Concomitant]
     Active Substance: CALCIUM
     Dosage: UNK
     Route: 065

REACTIONS (3)
  - Arthralgia [Recovering/Resolving]
  - Muscular weakness [Recovering/Resolving]
  - Immobile [Recovering/Resolving]

NARRATIVE: CASE EVENT DATE: 20230901
